FAERS Safety Report 7796887-5 (Version None)
Quarter: 2011Q4

REPORT INFORMATION
  Report Type: 
  Country: None (occurrence: None)
  Receive Date: 20111003
  Receipt Date: 20110914
  Transmission Date: 20120403
  Serious: Yes (Death, Hospitalization)
  Sender: FDA-Public Use
  Company Number: US-ACCORD-010708

PATIENT
  Age: 67 Year
  Sex: Male

DRUGS (3)
  1. BEVACIZUMABE(BEVACIZUMAB) [Suspect]
     Indication: GLIOBLASTOMA MULTIFORME
  2. IRINOTECAN HCL [Suspect]
     Indication: GLIOBLASTOMA MULTIFORME
  3. TEMOZOLOMIDE [Concomitant]

REACTIONS (8)
  - GLIOBLASTOMA MULTIFORME [None]
  - MEDICAL DEVICE COMPLICATION [None]
  - NEOPLASM PROGRESSION [None]
  - INFECTIOUS PERITONITIS [None]
  - SEPSIS [None]
  - CANDIDA TEST POSITIVE [None]
  - INTESTINAL PERFORATION [None]
  - INTRACRANIAL HYPOTENSION [None]
